FAERS Safety Report 5135534-8 (Version None)
Quarter: 2006Q4

REPORT INFORMATION
  Report Type: 
  Country: None (occurrence: None)
  Receive Date: 20061024
  Receipt Date: 20061024
  Transmission Date: 20070319
  Serious: Yes (Hospitalization, Disabling)
  Sender: FDA-Public Use
  Company Number: None

PATIENT
  Age: 45 Year
  Sex: Male
  Weight: 80.5 kg

DRUGS (12)
  1. ZIPRASIDONE 80MG PFIZER [Suspect]
     Indication: BIPOLAR DISORDER
     Dosage: 80MG AT NOON PO
     Route: 048
     Dates: start: 20060727, end: 20060809
  2. ZIPRASIDONE 80MG PFIZER [Suspect]
     Indication: SCHIZOAFFECTIVE DISORDER
     Dosage: 80MG AT NOON PO
     Route: 048
     Dates: start: 20060727, end: 20060809
  3. ZIPRASIDONE 160MG PFIZER [Suspect]
     Indication: BIPOLAR DISORDER
     Dosage: 160MG AT BEDTIME PO
     Route: 048
     Dates: start: 20060727, end: 20060809
  4. ZIPRASIDONE 160MG PFIZER [Suspect]
     Indication: SCHIZOAFFECTIVE DISORDER
     Dosage: 160MG AT BEDTIME PO
     Route: 048
     Dates: start: 20060727, end: 20060809
  5. OLANZAPINE [Concomitant]
  6. LITHIUM CITRATE [Concomitant]
  7. RITONAVIR [Concomitant]
  8. SAQUINAVIR [Concomitant]
  9. STAVUDINE [Concomitant]
  10. LAMIVUDINE [Concomitant]
  11. ZYPREXA ZYDIS [Concomitant]
  12. LORAZEPAM [Concomitant]

REACTIONS (2)
  - AGITATION [None]
  - ELECTROCARDIOGRAM QT CORRECTED INTERVAL PROLONGED [None]
